FAERS Safety Report 9770784 (Version 6)
Quarter: 2014Q1

REPORT INFORMATION
  Report Type: Report from Study
  Country: IT (occurrence: IT)
  Receive Date: 20131218
  Receipt Date: 20140203
  Transmission Date: 20141002
  Serious: Yes (Life-Threatening, Hospitalization)
  Sender: FDA-Public Use
  Company Number: IT-BAYER-2013-151552

PATIENT
  Age: 60 Year
  Sex: Female
  Weight: 62 kg

DRUGS (6)
  1. REGORAFENIB [Suspect]
     Indication: COLORECTAL CANCER
     Dosage: 160 MG, QD
     Route: 048
     Dates: start: 20130920, end: 20131129
  2. DEXAMETHASONE [Concomitant]
     Dosage: 32 DROPS TO DAY
  3. LANSOPRAZOLE [Concomitant]
     Dosage: DAILY DOSE 30 MG
     Route: 048
  4. ENALAPRIL [Concomitant]
     Dosage: DAILY DOSE .5 DF
     Route: 048
  5. DARBEPOETIN ALFA [Concomitant]
     Dosage: UNK
  6. FERROUS GLYCINE SULFATE [Concomitant]
     Dosage: DAILY DOSE 100 MG

REACTIONS (2)
  - Abscess [Recovered/Resolved with Sequelae]
  - Fasciitis [Recovered/Resolved with Sequelae]
